FAERS Safety Report 4931346-6 (Version None)
Quarter: 2006Q1

REPORT INFORMATION
  Report Type: 
  Country: None (occurrence: None)
  Receive Date: 20060228
  Receipt Date: 20060215
  Transmission Date: 20060701
  Serious: Yes (Hospitalization)
  Sender: FDA-Public Use
  Company Number: 221417

PATIENT
  Age: 60 Year
  Sex: Female
  Weight: 57.1 kg

DRUGS (7)
  1. AVASTIN [Suspect]
     Indication: COLORECTAL CANCER METASTATIC
     Dosage: 5 MG/KG, Q2W, INTRAVENOUS
     Route: 042
     Dates: start: 20051220, end: 20051220
  2. FLUOROURACIL [Suspect]
     Indication: COLORECTAL CANCER METASTATIC
     Dosage: 2400 MG/M2, Q2W, INTRAVENOUS
     Route: 042
     Dates: start: 20051220, end: 20051221
  3. LEUCOVORIN (LEUCOVORIN (LEUCOVORIN CALCIUM) [Suspect]
     Indication: COLORECTAL CANCER METASTATIC
     Dosage: 200 MG/M2, Q2W, INTRAVENOUS
     Route: 042
     Dates: start: 20051220, end: 20051220
  4. OXALIPLATIN (OXALIPLATIN) [Suspect]
     Indication: COLORECTAL CANCER METASTATIC
     Dosage: 85 MG/M2, Q2W, INTRAVENOUS
     Route: 042
     Dates: start: 20051220, end: 20051220
  5. CALCIUM/MAGNESIUM OR PLACEBO (CALCIUM/MAGNESIUM OR PLACEBO) [Suspect]
     Indication: COLORECTAL CANCER METASTATIC
     Dosage: 1 UNIT, Q2W, INTRAVENOUS
     Route: 042
     Dates: start: 20051220, end: 20051220
  6. ZOLPIDEM TARTRATE [Concomitant]
  7. IRON (IRON NOS) [Concomitant]

REACTIONS (7)
  - DEHYDRATION [None]
  - OEDEMA PERIPHERAL [None]
  - OXYGEN SATURATION DECREASED [None]
  - PAIN IN EXTREMITY [None]
  - PYREXIA [None]
  - SHOULDER PAIN [None]
  - WHITE BLOOD CELL COUNT INCREASED [None]
